FAERS Safety Report 5265227-8 (Version None)
Quarter: 2007Q1

REPORT INFORMATION
  Report Type: 
  Country: None (occurrence: None)
  Receive Date: 20061213
  Receipt Date: 20040519
  Transmission Date: 20070707
  Serious: No
  Sender: FDA-Public Use
  Company Number: 2004UW10394

PATIENT
  Age: 68 Year
  Sex: Female
  Weight: 64.4108 kg

DRUGS (8)
  1. TAMOXIFEN CITRATE [Suspect]
     Indication: BREAST CANCER
     Dosage: 20 MG PO
     Route: 048
  2. ATENOLOL [Concomitant]
  3. TRIAMTERENE [Concomitant]
  4. POTASSIUM CHLORIDE [Concomitant]
  5. ZOLOFT [Concomitant]
  6. COUMADIN [Concomitant]
  7. ATARAX [Concomitant]
  8. DIPHENHYDRAMINE HCL [Concomitant]

REACTIONS (2)
  - HYPERPLASIA [None]
  - ULTRASOUND PELVIS ABNORMAL [None]
